FAERS Safety Report 9536104 (Version 1)
Quarter: 2013Q2

REPORT INFORMATION
  Report Type: Spontaneous
  Country: US (occurrence: None)
  Receive Date: 20130507
  Receipt Date: 20130507
  Transmission Date: 20140414
  Serious: Yes (Other)
  Sender: FDA-Public Use
  Company Number: PHEH2012US012334

PATIENT
  Age: 24 Year
  Sex: Male

DRUGS (2)
  1. AFINITOR [Suspect]
     Indication: TUBEROUS SCLEROSIS
     Route: 048
     Dates: start: 20110101
  2. LAMICTAL (LAMOTRIGINE) [Concomitant]

REACTIONS (2)
  - Diarrhoea [None]
  - Vomiting [None]
